FAERS Safety Report 18214572 (Version 1)
Quarter: 2020Q3

REPORT INFORMATION
  Report Type: Report from Study
  Country: US (occurrence: US)
  Receive Date: 20200831
  Receipt Date: 20200831
  Transmission Date: 20201103
  Serious: Yes (Hospitalization, Other)
  Sender: FDA-Public Use
  Company Number: NVSC2020US236890

PATIENT
  Age: 42 Year
  Sex: Male

DRUGS (1)
  1. ENTRESTO [Suspect]
     Active Substance: SACUBITRIL\VALSARTAN
     Indication: PRODUCT USED FOR UNKNOWN INDICATION
     Dosage: 0.5 DF, BID
     Route: 048

REACTIONS (9)
  - Wrong technique in product usage process [Unknown]
  - Fall [Unknown]
  - Rib fracture [Unknown]
  - Ejection fraction decreased [Unknown]
  - Clavicle fracture [Unknown]
  - Hypotension [Unknown]
  - Intracardiac thrombus [Unknown]
  - Product prescribing error [Unknown]
  - Accident [Unknown]

NARRATIVE: CASE EVENT DATE: 20200814
